FAERS Safety Report 10345619 (Version 2)
Quarter: 2014Q3

REPORT INFORMATION
  Report Type: Spontaneous
  Country: US (occurrence: US)
  Receive Date: 20140728
  Receipt Date: 20140728
  Transmission Date: 20150326
  Serious: Yes (Hospitalization, Other)
  Sender: FDA-Public Use
  Company Number: US-009507513-2006-149793-NL

PATIENT
  Sex: Female
  Weight: 61.24 kg

DRUGS (5)
  1. SOMA [Concomitant]
     Active Substance: CARISOPRODOL
     Indication: LIGAMENT SPRAIN
     Dates: start: 20050909, end: 20050910
  2. LEVAQUIN [Concomitant]
     Active Substance: LEVOFLOXACIN
     Indication: PNEUMONIA
     Dosage: 500 MG, QD
     Dates: start: 20050910
  3. NAPROSYN [Concomitant]
     Active Substance: NAPROXEN
     Indication: LIGAMENT SPRAIN
     Dates: start: 20050909, end: 20050910
  4. ACETAMINOPHEN (+) HYDROCODONE BITARTRATE [Concomitant]
     Active Substance: ACETAMINOPHEN\HYDROCODONE
     Indication: LIGAMENT SPRAIN
     Dates: start: 20050909
  5. NUVARING [Suspect]
     Active Substance: ETHINYL ESTRADIOL\ETONOGESTREL
     Indication: CONTRACEPTION
     Dosage: CONTINUING: NO
     Route: 067
     Dates: start: 20050621, end: 20050913

REACTIONS (4)
  - Pulmonary embolism [Recovered/Resolved]
  - Cardiomegaly [Unknown]
  - Pulmonary infarction [Recovered/Resolved]
  - Deep vein thrombosis [Recovered/Resolved]

NARRATIVE: CASE EVENT DATE: 200508
